FAERS Safety Report 21319969 (Version 3)
Quarter: 2022Q4

REPORT INFORMATION
  Report Type: Spontaneous
  Country: US (occurrence: US)
  Receive Date: 20220911
  Receipt Date: 20221020
  Transmission Date: 20230113
  Serious: No
  Sender: FDA-Public Use
  Company Number: US-SANOFI-01263297

PATIENT
  Sex: Female

DRUGS (1)
  1. NASACORT ALLERGY 24HR [Suspect]
     Active Substance: TRIAMCINOLONE ACETONIDE
     Dosage: 220 UG, QD,220 MCG PER DAY

REACTIONS (3)
  - Tenderness [Unknown]
  - Mastication disorder [Unknown]
  - Pain [Unknown]
